FAERS Safety Report 6772351-7 (Version None)
Quarter: 2010Q2

REPORT INFORMATION
  Report Type: 
  Country: None (occurrence: None)
  Receive Date: 20100616
  Receipt Date: 20091012
  Transmission Date: 20101027
  Serious: No
  Sender: FDA-Public Use
  Company Number: US-ASTRAZENECA-2009SE19591

PATIENT
  Sex: Female
  Weight: 94.3 kg

DRUGS (7)
  1. PULMICORT FLEXHALER [Suspect]
     Indication: COUGH
     Dosage: 180 INTERMITTENTLY
     Route: 055
  2. THEOPHYLLINE [Concomitant]
  3. SIMVASTATIN [Concomitant]
  4. PAROXETINE HCL [Concomitant]
  5. ENALAPRIL MALEATE [Concomitant]
  6. ASPIRIN [Concomitant]
  7. VITAMIN D [Concomitant]

REACTIONS (3)
  - COUGH [None]
  - DRUG INEFFECTIVE [None]
  - MEDICATION ERROR [None]
